FAERS Safety Report 9493229 (Version 4)
Quarter: 2014Q3

REPORT INFORMATION
  Report Type: Report from Study
  Country: JP (occurrence: JP)
  Receive Date: 20130902
  Receipt Date: 20140810
  Transmission Date: 20150326
  Serious: Yes (Other)
  Sender: FDA-Public Use
  Company Number: PHHY2012JP117970

PATIENT
  Age: 58 Year
  Sex: Male

DRUGS (35)
  1. CLOZARIL [Suspect]
     Active Substance: CLOZAPINE
     Dosage: 100 MG, DAILY
     Route: 048
     Dates: start: 20121012, end: 20121013
  2. CLOZARIL [Suspect]
     Active Substance: CLOZAPINE
     Dosage: 12.5 MG, DAILY
     Route: 048
     Dates: start: 20121220, end: 20121220
  3. FLUNITRAZEPAM [Concomitant]
     Active Substance: FLUNITRAZEPAM
     Indication: SCHIZOPHRENIA, PARANOID TYPE
     Dosage: 2 MG, UNK
     Route: 048
  4. CLOZARIL [Suspect]
     Active Substance: CLOZAPINE
     Dosage: 125 MG, DAILY
     Route: 048
     Dates: start: 20121014, end: 20121023
  5. CLOZARIL [Suspect]
     Active Substance: CLOZAPINE
     Dosage: 225 MG, DAILY
     Route: 048
     Dates: start: 20121212, end: 20121217
  6. SELENICA R [Concomitant]
     Active Substance: VALPROATE SODIUM
     Indication: SCHIZOPHRENIA, PARANOID TYPE
     Dosage: 800 MG, UNK
     Route: 048
  7. THYRADIN [Concomitant]
     Active Substance: LEVOTHYROXINE
     Indication: SCHIZOPHRENIA, PARANOID TYPE
     Dosage: 25 UG, UNK
     Route: 048
  8. LIMAS [Concomitant]
     Active Substance: LITHIUM CARBONATE
     Indication: SCHIZOPHRENIA, PARANOID TYPE
     Dosage: 400 MG, UNK
     Route: 048
     Dates: start: 20121016
  9. LEUCON [Concomitant]
     Indication: PROPHYLAXIS
     Dosage: 40 MG, UNK
     Route: 048
     Dates: start: 20121115
  10. FERROUS SULFATE [Concomitant]
     Active Substance: FERROUS SULFATE\FERROUS SULFATE, DRIED
     Indication: PROPHYLAXIS
     Dosage: 105 MG, UNK
     Route: 048
     Dates: start: 20121227
  11. CLOZARIL [Suspect]
     Active Substance: CLOZAPINE
     Dosage: 75 MG, DAILY
     Route: 048
     Dates: start: 20121010, end: 20121011
  12. CLOZARIL [Suspect]
     Active Substance: CLOZAPINE
     Dosage: 175 MG, DAILY
     Route: 048
     Dates: start: 20121027, end: 20121029
  13. PANTOSIN [Concomitant]
     Active Substance: PANTETHINE
     Dosage: 300 MG, UNK
     Route: 048
  14. CLOZARIL [Suspect]
     Active Substance: CLOZAPINE
     Dosage: 50 MG, DAILY
     Route: 048
     Dates: start: 20121007, end: 20121009
  15. CLOZARIL [Suspect]
     Active Substance: CLOZAPINE
     Dosage: 150 MG, DAILY
     Route: 048
     Dates: start: 20121024, end: 20121026
  16. CLOZARIL [Suspect]
     Active Substance: CLOZAPINE
     Dosage: 200 MG, DAILY
     Route: 048
     Dates: start: 20121030, end: 20121106
  17. CLOZARIL [Suspect]
     Active Substance: CLOZAPINE
     Dosage: 75 MG, DAILY
     Route: 048
     Dates: start: 20121227
  18. TASMOLIN [Concomitant]
     Active Substance: BIPERIDEN
     Indication: SCHIZOPHRENIA, PARANOID TYPE
     Dosage: 6 MG, UNK
     Route: 048
  19. CLOZARIL [Suspect]
     Active Substance: CLOZAPINE
     Dosage: 25 MG, DAILY
     Route: 048
     Dates: start: 20121221, end: 20121223
  20. LANSOPRAZOLE-OD [Concomitant]
     Active Substance: LANSOPRAZOLE
     Indication: PROPHYLAXIS
     Dosage: 15 MG, UNK
     Route: 048
     Dates: start: 20121220
  21. PANTOSIN [Concomitant]
     Active Substance: PANTETHINE
     Indication: SCHIZOPHRENIA, PARANOID TYPE
     Dosage: 600 MG, UNK
     Route: 048
     Dates: start: 20121112
  22. CLOZARIL [Suspect]
     Active Substance: CLOZAPINE
     Dosage: 250 MG, DAILY
     Route: 048
     Dates: start: 20121107, end: 20121211
  23. CLOZARIL [Suspect]
     Active Substance: CLOZAPINE
     Dosage: 50 MG, DAILY
     Route: 048
     Dates: start: 20121224, end: 20121226
  24. MAGMITT [Concomitant]
     Active Substance: MAGNESIUM OXIDE
     Indication: SCHIZOPHRENIA, PARANOID TYPE
     Dosage: 1320 MG, UNK
     Route: 048
  25. RIVOTRIL [Concomitant]
     Active Substance: CLONAZEPAM
     Indication: SCHIZOPHRENIA, PARANOID TYPE
     Dosage: 1.5 MG, UNK
     Route: 048
     Dates: end: 20121017
  26. LIMAS [Concomitant]
     Active Substance: LITHIUM CARBONATE
     Dosage: 600 MG, UNK
     Route: 048
  27. LIMAS [Concomitant]
     Active Substance: LITHIUM CARBONATE
     Dosage: 800 MG, UNK
     Route: 048
     Dates: end: 20121114
  28. PIARLE [Concomitant]
     Indication: SCHIZOPHRENIA, PARANOID TYPE
     Dosage: 60 ML, UNK
     Route: 048
     Dates: start: 20121220
  29. DAIKENCHUTO [Concomitant]
     Active Substance: HERBALS
     Indication: SCHIZOPHRENIA, PARANOID TYPE
     Dosage: 7.5 G, UNK
     Route: 048
     Dates: start: 20121220
  30. CLOZARIL [Suspect]
     Active Substance: CLOZAPINE
     Indication: SCHIZOPHRENIA, PARANOID TYPE
     Dosage: 12.5 MG, DAILY
     Route: 048
     Dates: start: 20121003, end: 20121003
  31. CLOZARIL [Suspect]
     Active Substance: CLOZAPINE
     Dosage: 25 MG, DAILY
     Route: 048
     Dates: start: 20121004, end: 20121006
  32. SODIUM VALPROATE [Concomitant]
     Active Substance: VALPROATE SODIUM
     Indication: SCHIZOPHRENIA, PARANOID TYPE
     Dosage: 200 MG, UNK
     Route: 048
     Dates: end: 20121212
  33. BENZALIN [Concomitant]
     Active Substance: NITRAZEPAM
     Indication: SCHIZOPHRENIA, PARANOID TYPE
     Dosage: 10 MG, UNK
     Route: 048
  34. URSO [Concomitant]
     Active Substance: URSODIOL
     Indication: PROPHYLAXIS
     Dosage: 300 MG, UNK
     Route: 048
     Dates: start: 20121220, end: 20121231
  35. SULTIMIN [Concomitant]
     Indication: SCHIZOPHRENIA, PARANOID TYPE
     Dosage: 5 MG, UNK
     Route: 048
     Dates: start: 20121220

REACTIONS (7)
  - Ileus [Recovered/Resolved]
  - Nausea [Recovered/Resolved]
  - Haematocrit decreased [Unknown]
  - Vomiting [Recovered/Resolved]
  - Blood pressure decreased [Not Recovered/Not Resolved]
  - Abdominal pain [Recovered/Resolved]
  - Haemoglobin decreased [Unknown]

NARRATIVE: CASE EVENT DATE: 20121211
